FAERS Safety Report 5018271-X (Version None)
Quarter: 2006Q2

REPORT INFORMATION
  Report Type: 
  Country: None (occurrence: None)
  Receive Date: 20060530
  Receipt Date: 20060516
  Transmission Date: 20061013
  Serious: Yes (Hospitalization, Other)
  Sender: FDA-Public Use
  Company Number: 2006064664

PATIENT
  Age: 37 Year
  Sex: Female
  Weight: 85.2762 kg

DRUGS (5)
  1. DEPO-PROVERA [Suspect]
     Indication: MENSTRUAL DISORDER
     Dosage: (LAST INJECTION)
     Dates: start: 20050101, end: 20050101
  2. CLOZAPINE [Concomitant]
  3. ZYPREXA [Concomitant]
  4. PAXIL [Concomitant]
  5. LORAZEPAM [Concomitant]

REACTIONS (6)
  - ANXIETY [None]
  - CONDITION AGGRAVATED [None]
  - MENORRHAGIA [None]
  - METRORRHAGIA [None]
  - THERAPY NON-RESPONDER [None]
  - WEIGHT INCREASED [None]
